FAERS Safety Report 5210525-7 (Version None)
Quarter: 2006Q4

REPORT INFORMATION
  Report Type: 
  Country: None (occurrence: None)
  Receive Date: 20061106
  Receipt Date: 20060718
  Transmission Date: 20070319
  Serious: Yes (Other)
  Sender: FDA-Public Use
  Company Number: US-JNJFOC-20060704501

PATIENT
  Age: 45 Year
  Sex: Male
  Weight: 95.2554 kg

DRUGS (8)
  1. IBUPROFEN [Suspect]
     Indication: BACK PAIN
     Dates: start: 20060717
  2. PEPCID [Suspect]
     Indication: ABDOMINAL PAIN UPPER
     Dosage: 20 MG, 1 IN 1 TOTAL
     Dates: start: 20060717, end: 20060717
  3. PERCOCET [Suspect]
     Indication: BACK PAIN
     Dates: start: 20060717
  4. ROBAXIN [Suspect]
     Indication: BACK PAIN
     Dates: start: 20060717
  5. PEPCID [Suspect]
     Indication: ABDOMINAL PAIN UPPER
     Dosage: , 1 IN 1 TOTAL
     Dates: start: 20060717, end: 20060717
  6. NARCOTIC PAIN MEDICATION (OTHER ANALGESICS AND ANTIDYRETICS) INJECTION [Suspect]
     Indication: PAIN
     Dosage: , 1 IN 1 TOTAL
     Dates: start: 20060717, end: 20060717
  7. EFFEXOR [Concomitant]
  8. ATIVAN [Concomitant]

REACTIONS (4)
  - ABDOMINAL PAIN UPPER [None]
  - INCORRECT DOSE ADMINISTERED [None]
  - NAUSEA [None]
  - VOMITING [None]
